FAERS Safety Report 16528398 (Version 3)
Quarter: 2022Q4

REPORT INFORMATION
  Report Type: Spontaneous
  Country: US (occurrence: US)
  Receive Date: 20190704
  Receipt Date: 20221028
  Transmission Date: 20230113
  Serious: Yes (Other)
  Sender: FDA-Public Use
  Company Number: US-TEVA-2019-US-1070383

PATIENT
  Age: 5 Year
  Sex: Female

DRUGS (1)
  1. CLOZAPINE [Suspect]
     Active Substance: CLOZAPINE
     Indication: Molluscum contagiosum
     Dosage: 200 MG
     Route: 048

REACTIONS (11)
  - Lethargy [Recovered/Resolved]
  - Tachycardia [Recovered/Resolved]
  - Mental status changes [Recovered/Resolved]
  - Drooling [Recovered/Resolved]
  - Eye movement disorder [Recovered/Resolved]
  - Movement disorder [Recovered/Resolved]
  - Salivary hypersecretion [Recovered/Resolved]
  - Ataxia [Recovered/Resolved]
  - Toxicity to various agents [Recovered/Resolved]
  - Overdose [Unknown]
  - Product dispensing error [Unknown]
